FAERS Safety Report 8997517 (Version 2)
Quarter: 2013Q2

REPORT INFORMATION
  Report Type: Spontaneous
  Country: US (occurrence: US)
  Receive Date: 20130104
  Receipt Date: 20130515
  Transmission Date: 20140414
  Serious: No
  Sender: FDA-Public Use
  Company Number: US-ASTRAZENECA-2012SE94415

PATIENT
  Age: 59 Year
  Sex: Female
  Weight: 90.7 kg

DRUGS (3)
  1. CRESTOR [Suspect]
     Indication: BLOOD CHOLESTEROL
     Route: 048
     Dates: start: 201211, end: 20121213
  2. THYROID MEDICATION [Concomitant]
     Indication: THYROID DISORDER
  3. ASA [Concomitant]

REACTIONS (8)
  - Vascular pain [Unknown]
  - Feeling abnormal [Unknown]
  - Malaise [Unknown]
  - Bone pain [Unknown]
  - Gait disturbance [Unknown]
  - Adverse event [Unknown]
  - Pain in extremity [Unknown]
  - Myalgia [Unknown]
